FAERS Safety Report 9310418 (Version 1)
Quarter: 2013Q2

REPORT INFORMATION
  Report Type: Spontaneous
  Country: US (occurrence: US)
  Receive Date: 20130527
  Receipt Date: 20130527
  Transmission Date: 20140414
  Serious: No
  Sender: FDA-Public Use
  Company Number: US-PFIZER INC-2013159829

PATIENT
  Age: 60 Year
  Sex: Female
  Weight: 78.01 kg

DRUGS (1)
  1. LYRICA [Suspect]
     Indication: BACK DISORDER
     Dosage: 150 MG, UNK

REACTIONS (1)
  - Nasopharyngitis [Unknown]
